FAERS Safety Report 11071495 (Version 4)
Quarter: 2015Q3

REPORT INFORMATION
  Report Type: Spontaneous
  Country: US (occurrence: US)
  Receive Date: 20150428
  Receipt Date: 20150706
  Transmission Date: 20151125
  Serious: No
  Sender: FDA-Public Use
  Company Number: US-PFIZER INC-2015134997

PATIENT
  Age: 56 Year
  Sex: Female
  Weight: 54 kg

DRUGS (2)
  1. ESTRING [Suspect]
     Active Substance: ESTRADIOL
     Indication: VULVOVAGINAL DRYNESS
     Dosage: 2 MG, EVERY 3 MONTHS
     Dates: start: 20141106
  2. ESTRING [Suspect]
     Active Substance: ESTRADIOL
     Indication: ATROPHIC VULVOVAGINITIS
     Dosage: 2 MG, EVERY 3 MONTHS

REACTIONS (6)
  - Vulvovaginal discomfort [Recovered/Resolved]
  - Back pain [Recovered/Resolved]
  - Musculoskeletal discomfort [Recovered/Resolved]
  - Pelvic pain [Recovered/Resolved]
  - Pain in extremity [Recovered/Resolved]
  - Nerve compression [Unknown]

NARRATIVE: CASE EVENT DATE: 201411
